FAERS Safety Report 18294961 (Version 1)
Quarter: 2020Q3

REPORT INFORMATION
  Report Type: Spontaneous
  Country: US (occurrence: US)
  Receive Date: 20200922
  Receipt Date: 20200922
  Transmission Date: 20201103
  Serious: Yes (Other)
  Sender: FDA-Public Use
  Company Number: None

PATIENT
  Age: 33 Year
  Sex: Female
  Weight: 112.5 kg

DRUGS (3)
  1. VENLAFAXINE [Suspect]
     Active Substance: VENLAFAXINE HYDROCHLORIDE
     Indication: MAJOR DEPRESSION
     Route: 048
     Dates: start: 20190401, end: 20200812
  2. BUPROPION XL 300MG [Concomitant]
     Active Substance: BUPROPION
     Dates: start: 20150101
  3. TRAZODONE [Concomitant]
     Active Substance: TRAZODONE HYDROCHLORIDE
     Dates: start: 20190401

REACTIONS (6)
  - Hyperhidrosis [None]
  - Influenza like illness [None]
  - Insomnia [None]
  - Suicidal ideation [None]
  - Dysphoria [None]
  - Tremor [None]

NARRATIVE: CASE EVENT DATE: 20200815
